FAERS Safety Report 10764850 (Version 1)
Quarter: 2015Q1

REPORT INFORMATION
  Report Type: Spontaneous
  Country: US (occurrence: None)
  Receive Date: 20150203
  Receipt Date: 20150203
  Transmission Date: 20150721
  Serious: Yes (Disabling, Other)
  Sender: FDA-Public Use
  Company Number: AXC-2015-000040

PATIENT
  Age: 5 Year
  Sex: Male

DRUGS (14)
  1. KEPPRA [Concomitant]
     Active Substance: LEVETIRACETAM
  2. LEUCOVORIN CALCIUM /00566702/ (CALCIUM FOLINATE) [Concomitant]
  3. TRAZODONE /00447702/ (TRAZODONE HYDROCHLORIDE) [Concomitant]
  4. CLONIDINE HYDROCHLORIDE. [Concomitant]
     Active Substance: CLONIDINE HYDROCHLORIDE
  5. ONDANSETRON [Concomitant]
     Active Substance: ONDANSETRON
  6. ONFI [Concomitant]
     Active Substance: CLOBAZAM
  7. CARAFATE [Suspect]
     Active Substance: SUCRALFATE
     Indication: PRODUCT USED FOR UNKNOWN INDICATION
     Dosage: INTRAGASTRIC
  8. OMEPRAZOLE. [Concomitant]
     Active Substance: OMEPRAZOLE
  9. ROBINUL (GLYCOPYRRONIUM BROMIDE) [Concomitant]
  10. CLONAZEPAM. [Concomitant]
     Active Substance: CLONAZEPAM
  11. ERYPED (ERYTHROMYCIN ETHYLSUCCINATE) [Concomitant]
  12. ARTANE (TRIHEXYPHENIDYL HYDROCHLORIDE) [Concomitant]
  13. NEURONTIN [Concomitant]
     Active Substance: GABAPENTIN
  14. BACLOFEN. [Concomitant]
     Active Substance: BACLOFEN

REACTIONS (4)
  - Urine output increased [None]
  - Leukodystrophy [None]
  - Weight decreased [None]
  - Condition aggravated [None]
